FAERS Safety Report 8892094 (Version 2)
Quarter: 2012Q4

REPORT INFORMATION
  Report Type: Report from Study
  Country: US (occurrence: US)
  Receive Date: 20121107
  Receipt Date: 20121127
  Transmission Date: 20130627
  Serious: Yes (Hospitalization)
  Sender: FDA-Public Use
  Company Number: US-ROCHE-1150866

PATIENT
  Age: 45 Year
  Sex: Female
  Weight: 125.76 kg

DRUGS (17)
  1. OMALIZUMAB [Suspect]
     Indication: ASTHMA
     Dosage: Two injections Every month
     Route: 058
     Dates: start: 20120713
  2. SYMBICORT [Concomitant]
     Dosage: inhale 2 puffs
     Route: 065
  3. ZYRTEC [Concomitant]
     Route: 048
  4. XOPENEX [Concomitant]
     Dosage: dose strength: 0.63 mg/3 ml , 1 ampule by nebulisation.
     Route: 065
  5. PULMICORT [Concomitant]
     Dosage: 1 ml (0.5 mg total) by nebulization 1 times daily
     Route: 065
  6. PULMICORT [Concomitant]
     Dosage: strength 1 mg/2ml
     Route: 065
  7. FLEXERIL [Concomitant]
     Route: 048
  8. XOPENEX HFA [Concomitant]
     Indication: WHEEZING
     Dosage: inhlae 2 puffs as directed every 4 hours as needed
     Route: 065
  9. ZESTRIL [Concomitant]
     Route: 048
  10. GLUCOPHAGE [Concomitant]
     Route: 048
  11. NASONEX [Concomitant]
     Dosage: 1 spray by nasal route daily
     Route: 050
  12. SINGULAIR [Concomitant]
     Route: 048
  13. PATADAY [Concomitant]
     Dosage: 1 drop to eye daily
     Route: 065
  14. PATANASE [Concomitant]
     Dosage: 2 sprays by nasal route
     Route: 065
  15. PERCOCET [Concomitant]
     Dosage: 5-325 mg per tablet, 1 tablet
     Route: 048
  16. PRAVACHOL [Concomitant]
     Route: 048
  17. DESYREL [Concomitant]
     Dosage: 1/2 tablet at bed time.
     Route: 048

REACTIONS (1)
  - Asthma [Recovered/Resolved]
